FAERS Safety Report 12589631 (Version 1)
Quarter: 2016Q3

REPORT INFORMATION
  Report Type: Spontaneous
  Country: AU (occurrence: AU)
  Receive Date: 20160725
  Receipt Date: 20160725
  Transmission Date: 20161109
  Serious: Yes (Other)
  Sender: FDA-Public Use
  Company Number: AU-SHENZHEN TECHDOW PHARMACEUTICAL CO. LTD-AU-2016TEC0000023

PATIENT
  Age: 64 Year
  Sex: Male

DRUGS (6)
  1. HEPARIN SODIUM INJECTION USP, PRESERVATIVE FREE [Suspect]
     Active Substance: HEPARIN SODIUM
     Indication: ACUTE CORONARY SYNDROME
  2. HEPARIN SODIUM INJECTION USP, PRESERVATIVE FREE [Suspect]
     Active Substance: HEPARIN SODIUM
     Indication: THROMBOSIS
     Dosage: 70 UNITS/KG BOLUSES
     Route: 042
  3. PRASUGREL [Concomitant]
     Active Substance: PRASUGREL
     Indication: ACUTE CORONARY SYNDROME
     Dosage: 60 MG LOADING DOSE
     Route: 048
  4. ABCIXIMAB [Suspect]
     Active Substance: ABCIXIMAB
     Indication: THROMBOSIS
     Dosage: 0.25 MG/KG BOLUSES
     Route: 040
  5. ASPIRIN                            /00002701/ [Concomitant]
     Active Substance: ASPIRIN
     Indication: ACUTE CORONARY SYNDROME
     Dosage: 300 MG LOADING DOSE
     Route: 048
  6. ABCIXIMAB [Suspect]
     Active Substance: ABCIXIMAB
     Indication: ACUTE CORONARY SYNDROME
     Dosage: 0.125 UG/KG/MIN
     Route: 041

REACTIONS (8)
  - Urinary retention [Recovered/Resolved]
  - Subdural haematoma [Recovered/Resolved]
  - Back pain [Recovered/Resolved]
  - Anal sphincter atony [Recovered/Resolved]
  - Asthenia [Recovered/Resolved]
  - Areflexia [Recovered/Resolved]
  - Sensory level abnormal [Recovered/Resolved]
  - Paraplegia [Recovered/Resolved]
